FAERS Safety Report 6367449-1 (Version None)
Quarter: 2009Q3

REPORT INFORMATION
  Report Type: 
  Country: None (occurrence: None)
  Receive Date: 20090921
  Receipt Date: 20090916
  Transmission Date: 20100115
  Serious: Yes (Hospitalization)
  Sender: FDA-Public Use
  Company Number: B0590890A

PATIENT
  Sex: Male

DRUGS (5)
  1. ROPINIROLE [Suspect]
     Indication: PARKINSON'S DISEASE
     Route: 048
     Dates: start: 20090502, end: 20090828
  2. PLACEBO [Suspect]
     Indication: PARKINSON'S DISEASE
     Dates: start: 20090502, end: 20090828
  3. SELEGILINE HCL [Suspect]
     Indication: DRUG USE FOR UNKNOWN INDICATION
     Dosage: 5MG TWICE PER DAY
     Route: 048
     Dates: start: 20090304
  4. MADOPAR [Suspect]
     Indication: DRUG USE FOR UNKNOWN INDICATION
     Dosage: 100MG THREE TIMES PER DAY
     Route: 048
     Dates: start: 20090711, end: 20090828
  5. COMTAN [Suspect]
     Dosage: 200MG THREE TIMES PER DAY
     Route: 048
     Dates: start: 20090401, end: 20090828

REACTIONS (6)
  - CHILLS [None]
  - DEHYDRATION [None]
  - DYSKINESIA [None]
  - NEUROLEPTIC MALIGNANT SYNDROME [None]
  - PAIN IN EXTREMITY [None]
  - PYREXIA [None]
